FAERS Safety Report 23134317 (Version 1)
Quarter: 2023Q4

REPORT INFORMATION
  Report Type: Spontaneous
  Country: TW (occurrence: TW)
  Receive Date: 20231101
  Receipt Date: 20231101
  Transmission Date: 20240110
  Serious: Yes (Death)
  Sender: FDA-Public Use
  Company Number: TW-DSJP-DSJ-2023-144891

PATIENT
  Age: 59 Year
  Sex: Female

DRUGS (1)
  1. TRASTUZUMAB DERUXTECAN [Suspect]
     Active Substance: TRASTUZUMAB DERUXTECAN
     Indication: Breast cancer metastatic
     Dosage: 300 MG, ONCE EVERY 3 WK
     Route: 042
     Dates: start: 202207, end: 202306

REACTIONS (1)
  - Brain cancer metastatic [Fatal]

NARRATIVE: CASE EVENT DATE: 20230701
